FAERS Safety Report 25497651 (Version 1)
Quarter: 2025Q3

REPORT INFORMATION
  Report Type: Spontaneous
  Country: JP (occurrence: JP)
  Receive Date: 20250701
  Receipt Date: 20250701
  Transmission Date: 20251021
  Serious: Yes (Hospitalization, Other)
  Sender: MERCK SHARP & DOHME LLC
  Company Number: JP-009507513-2300129

PATIENT
  Age: 57 Year
  Sex: Female

DRUGS (6)
  1. KEYTRUDA [Suspect]
     Active Substance: PEMBROLIZUMAB
     Indication: Uterine cancer
  2. KEYTRUDA [Suspect]
     Active Substance: PEMBROLIZUMAB
     Indication: Uterine cancer
  3. LENVIMA [Suspect]
     Active Substance: LENVATINIB
     Indication: Uterine cancer
  4. LENVIMA [Suspect]
     Active Substance: LENVATINIB
     Indication: Uterine cancer
  5. LENVIMA [Suspect]
     Active Substance: LENVATINIB
     Indication: Uterine cancer
  6. LENVIMA [Suspect]
     Active Substance: LENVATINIB
     Indication: Uterine cancer

REACTIONS (6)
  - Pneumocystis jirovecii pneumonia [Recovered/Resolved]
  - Hypertension [Unknown]
  - Myelosuppression [Unknown]
  - Hepatic function abnormal [Unknown]
  - Therapy partial responder [Unknown]
  - Gamma-glutamyltransferase increased [Unknown]
